FAERS Safety Report 12723506 (Version 1)
Quarter: 2016Q3

REPORT INFORMATION
  Report Type: Spontaneous
  Country: US (occurrence: US)
  Receive Date: 20160908
  Receipt Date: 20160908
  Transmission Date: 20161109
  Serious: No
  Sender: FDA-Public Use
  Company Number: US-PFIZER INC-2016421152

PATIENT
  Age: 57 Year
  Sex: Female
  Weight: 71.66 kg

DRUGS (1)
  1. IBRANCE [Suspect]
     Active Substance: PALBOCICLIB
     Indication: BREAST CANCER FEMALE
     Dosage: 100 MG, CYCLIC (D1-21 Q 28)
     Route: 048
     Dates: start: 20160902

REACTIONS (1)
  - Headache [Unknown]

NARRATIVE: CASE EVENT DATE: 20160905
